FAERS Safety Report 4541773-7 (Version None)
Quarter: 2004Q4

REPORT INFORMATION
  Report Type: 
  Country: None (occurrence: None)
  Receive Date: 20041227
  Receipt Date: 20041214
  Transmission Date: 20050328
  Serious: Yes (Death)
  Sender: FDA-Public Use
  Company Number: 2004088663

PATIENT
  Age: 42 Year
  Sex: Male
  Weight: 70 kg

DRUGS (10)
  1. ZELDOX (CAPSULES) (ZIPRASIDONE) [Suspect]
     Indication: SCHIZOPHRENIA
     Dosage: 120 MG (2 IN 1 D), ORAL
     Route: 048
     Dates: start: 20040909
  2. LORATADINE [Concomitant]
  3. SALBUTAMOL (SALBUTAMOL) [Concomitant]
  4. BECLOMETHASONE DIPROPIONATE [Concomitant]
  5. MOMETASONE FUROATE [Concomitant]
  6. PROPRANOLOL HYDROCHLORIDE [Concomitant]
  7. LEVOTHYROXINE SODIUM [Concomitant]
  8. SINUSELECT (HOMEOPATICS NOS) [Concomitant]
  9. SELENIDE SODIUM (SELENIDE SODIUM) [Concomitant]
  10. ANTIHISTAMINES (ANTIHISTAMINES) [Concomitant]

REACTIONS (7)
  - DIZZINESS [None]
  - DYSPNOEA [None]
  - HYPERHIDROSIS [None]
  - NAUSEA [None]
  - SUDDEN CARDIAC DEATH [None]
  - SYNCOPE [None]
  - TACHYCARDIA [None]
